FAERS Safety Report 5170175-8 (Version None)
Quarter: 2006Q4

REPORT INFORMATION
  Report Type: 
  Country: None (occurrence: None)
  Receive Date: 20061204
  Receipt Date: 20061127
  Transmission Date: 20070319
  Serious: Yes (Hospitalization)
  Sender: FDA-Public Use
  Company Number: 2006146150

PATIENT
  Age: 90 Year
  Sex: Female

DRUGS (12)
  1. AMLODIPINE [Suspect]
     Dosage: 5 MG (5 MG, INTERVAL:  EVERY DAY), ORAL
     Route: 048
  2. MODURETIC 5-50 [Suspect]
     Dosage: 1/2 DF, ORAL
     Route: 048
     Dates: end: 20060615
  3. PAROXETINE HYDROCHLORIDE [Suspect]
     Dosage: 10 MG (10 MG, INTERVAL: EVERY DAY), ORAL
     Route: 048
     Dates: start: 20060524, end: 20060614
  4. FORLAX (MACROGOL) [Suspect]
     Dosage: 1 DF DAILY, ORAL
     Route: 048
     Dates: end: 20060615
  5. PANTOPRAZOLE SODIUM [Suspect]
     Dosage: 1 DF (INTERVAL: EVERY DAY), ORAL
     Route: 048
     Dates: end: 20060615
  6. BUFLOMEDIL (BUFLOMEDIL) [Suspect]
     Dosage: 600 MG (300 MG, IN THE MORNING AND EVENING), ORAL
     Route: 048
     Dates: end: 20060615
  7. XALATAN [Concomitant]
  8. LEXOMIL (BROMAZEPAM) [Concomitant]
  9. VASTAREL (TRIMETAZIDINE HYDROCHLORIDE) [Concomitant]
  10. PLAVIX [Concomitant]
  11. AMOXICILLIN TRIHYDRATE [Concomitant]
  12. FLAGYL COMP (METRONIDAZOLE, NYSTATIN) [Concomitant]

REACTIONS (5)
  - CREATININE RENAL CLEARANCE DECREASED [None]
  - DISORIENTATION [None]
  - HYPONATRAEMIA [None]
  - NAUSEA [None]
  - VOMITING [None]
